FAERS Safety Report 8368905-7 (Version None)
Quarter: 2012Q2

REPORT INFORMATION
  Report Type: 
  Country: None (occurrence: None)
  Receive Date: 20120518
  Receipt Date: 20120504
  Transmission Date: 20120825
  Serious: No
  Sender: FDA-Public Use
  Company Number: US-B.I. PHARMACEUTICALS,INC./RIDGEFIELD-2012-BP-10177BP

PATIENT
  Sex: Female

DRUGS (4)
  1. FLOVENT [Concomitant]
     Indication: EMPHYSEMA
  2. SPIRIVA [Suspect]
     Indication: EMPHYSEMA
     Dosage: 18 MCG
     Route: 055
     Dates: start: 20091101
  3. FLOVENT [Concomitant]
     Indication: ASTHMA
     Route: 055
  4. SINGULAIR [Concomitant]
     Indication: ASTHMA
     Route: 048

REACTIONS (3)
  - LUMBAR VERTEBRAL FRACTURE [None]
  - FALL [None]
  - THORACIC VERTEBRAL FRACTURE [None]
